FAERS Safety Report 4310153-1 (Version None)
Quarter: 2004Q1

REPORT INFORMATION
  Report Type: 
  Country: None (occurrence: None)
  Receive Date: 20040302
  Receipt Date: 20040302
  Transmission Date: 20041129
  Serious: Yes (Hospitalization)
  Sender: FDA-Public Use
  Company Number: None

PATIENT
  Age: 34 Year
  Sex: Male

DRUGS (2)
  1. ANTITHYMOCYTE GLOBULIN [Suspect]
  2. ALEMTUZUMAB [Suspect]

REACTIONS (2)
  - ARTHRALGIA [None]
  - SERUM SICKNESS [None]
